FAERS Safety Report 8386151-8 (Version None)
Quarter: 2012Q2

REPORT INFORMATION
  Report Type: 
  Country: None (occurrence: None)
  Receive Date: 20120525
  Receipt Date: 20120514
  Transmission Date: 20120825
  Serious: Yes (Other)
  Sender: FDA-Public Use
  Company Number: US-SANOFI-AVENTIS-2012SA031928

PATIENT
  Sex: Male

DRUGS (6)
  1. SOLOSTAR [Suspect]
     Indication: TYPE 2 DIABETES MELLITUS
     Dates: start: 20110701
  2. LIDOCAINE [Suspect]
     Route: 065
  3. LANTUS [Suspect]
     Indication: TYPE 2 DIABETES MELLITUS
     Dosage: 60-62 UNITS
     Route: 058
  4. SOLOSTAR [Suspect]
     Dates: start: 20110701
  5. LANTUS [Suspect]
     Dosage: DOSE:36 UNIT(S)
     Route: 058
     Dates: start: 20110701
  6. LANTUS [Suspect]
     Dosage: 60-62 UNITS
     Route: 058

REACTIONS (4)
  - WEIGHT INCREASED [None]
  - MEDICATION ERROR [None]
  - SPINAL OPERATION [None]
  - INJECTION SITE PAIN [None]
